FAERS Safety Report 6932994-4 (Version None)
Quarter: 2010Q3

REPORT INFORMATION
  Report Type: 
  Country: None (occurrence: None)
  Receive Date: 20100818
  Receipt Date: 20100818
  Transmission Date: 20110219
  Serious: Yes (Other)
  Sender: FDA-Public Use
  Company Number: None

PATIENT
  Age: 46 Year
  Sex: Female
  Weight: 143.7903 kg

DRUGS (1)
  1. AMLODIPINE [Suspect]
     Dosage: 1 PILL A DAY (LAST YEAR UNTIL 7-24-10)

REACTIONS (3)
  - JOINT SWELLING [None]
  - OEDEMA PERIPHERAL [None]
  - VOMITING [None]
